FAERS Safety Report 18468259 (Version 1)
Quarter: 2020Q4

REPORT INFORMATION
  Report Type: Spontaneous
  Country: US (occurrence: US)
  Receive Date: 20201104
  Receipt Date: 20201104
  Transmission Date: 20210114
  Serious: Yes (Hospitalization)
  Sender: FDA-Public Use
  Company Number: None

PATIENT
  Age: 70 Year
  Sex: Male
  Weight: 95.85 kg

DRUGS (5)
  1. CAPECITABINE. [Suspect]
     Active Substance: CAPECITABINE
     Indication: COLON CANCER
     Route: 048
     Dates: start: 20200627, end: 20201104
  2. FLOMAX 0.4 MG [Concomitant]
  3. INDOMETHACIN. [Concomitant]
     Active Substance: INDOMETHACIN
  4. ALLOPURINOL 100 MG [Concomitant]
     Active Substance: ALLOPURINOL
  5. MULTIVITAMIN [Concomitant]
     Active Substance: VITAMINS

REACTIONS (2)
  - Therapy interrupted [None]
  - COVID-19 [None]

NARRATIVE: CASE EVENT DATE: 20201104
